FAERS Safety Report 8961655 (Version 1)
Quarter: 2012Q4

REPORT INFORMATION
  Report Type: 
  Country: CA (occurrence: CA)
  Receive Date: 20121212
  Receipt Date: 20121212
  Transmission Date: 20130627
  Serious: Yes (Hospitalization)
  Sender: FDA-Public Use
  Company Number: CA-COVIDIEN/TYCO HEALTHCARE/MALLINCKRODT-T201204231

PATIENT
  Age: 39 Year
  Sex: Female

DRUGS (9)
  1. METHADOSE [Suspect]
     Dosage: UNK
  2. NARATRIPTAN [Suspect]
     Dosage: UNK
  3. VENLAFAXINE [Suspect]
     Dosage: UNK
  4. SERTRALINE [Suspect]
     Dosage: UNK
  5. QUETIAPINE [Suspect]
     Dosage: UNK
  6. TOPIRAMATE [Suspect]
     Dosage: UNK
  7. ATORVASTATIN [Concomitant]
     Dosage: UNK
  8. TRIAMTERENE AND HYDROCHLOROTHIAZIDE [Concomitant]
     Dosage: UNK
  9. BACLOFEN [Concomitant]
     Dosage: UNK

REACTIONS (2)
  - Subarachnoid haemorrhage [Recovered/Resolved]
  - Cerebral vasoconstriction [Recovered/Resolved]
